FAERS Safety Report 8894939 (Version 1)
Quarter: 2012Q4

REPORT INFORMATION
  Report Type: 
  Country: IN (occurrence: IN)
  Receive Date: 20121108
  Receipt Date: 20121108
  Transmission Date: 20130627
  Serious: Yes (Other)
  Sender: FDA-Public Use
  Company Number: PHHY2012IN101074

PATIENT
  Age: 48 Year
  Sex: Female

DRUGS (2)
  1. EFETRAN [Suspect]
     Indication: CHRONIC MYELOID LEUKAEMIA
     Dosage: 145.6 mg, UNK
     Route: 048
  2. PAN [Concomitant]
     Dosage: 40, BID

REACTIONS (3)
  - Duodenal ulcer [Recovering/Resolving]
  - Gastritis [Recovering/Resolving]
  - Neck pain [Recovering/Resolving]
